FAERS Safety Report 9200155 (Version 2)
Quarter: 2013Q2

REPORT INFORMATION
  Report Type: Spontaneous
  Country: US (occurrence: US)
  Receive Date: 20130329
  Receipt Date: 20130503
  Transmission Date: 20140414
  Serious: Yes (Life-Threatening, Hospitalization, Other)
  Sender: FDA-Public Use
  Company Number: US-GLAXOSMITHKLINE-A1017931A

PATIENT
  Age: 33 Year
  Sex: Female
  Weight: 86.8 kg

DRUGS (8)
  1. BENLYSTA [Suspect]
     Indication: PRODUCT USED FOR UNKNOWN INDICATION
     Route: 042
  2. MYCOPHENOLATE [Concomitant]
  3. CHLOROQUINE [Concomitant]
  4. MEDROXYPROGESTERONE [Concomitant]
  5. CIPROFLOXACIN [Concomitant]
  6. TOPIRAMATE [Concomitant]
  7. VENLAFAXINE [Concomitant]
  8. METOPROLOL [Concomitant]

REACTIONS (8)
  - Pulmonary embolism [Recovering/Resolving]
  - Pulmonary infarction [Recovering/Resolving]
  - Pneumonia [Unknown]
  - Pulmonary haemorrhage [Unknown]
  - Chest pain [Recovering/Resolving]
  - Pulmonary mass [Unknown]
  - Atelectasis [Unknown]
  - Pleural effusion [Unknown]
